FAERS Safety Report 6259641-1 (Version None)
Quarter: 2009Q3

REPORT INFORMATION
  Report Type: 
  Country: None (occurrence: None)
  Receive Date: 20090706
  Receipt Date: 20090706
  Transmission Date: 20100115
  Serious: Yes (Hospitalization)
  Sender: FDA-Public Use
  Company Number: None

PATIENT
  Sex: Female
  Weight: 50.3493 kg

DRUGS (8)
  1. TOPOTECAN [Suspect]
     Indication: ENDOMETRIAL CANCER RECURRENT
     Dosage: 1.9 MG D1-5 Q 21 DAYS PO
     Route: 048
     Dates: start: 20090616, end: 20090620
  2. RAD001 5 MG. [Suspect]
     Dosage: 5 MG. QD PO
     Route: 048
     Dates: start: 20090623, end: 20090629
  3. TRAMADOL [Concomitant]
  4. LISINOPRIL [Concomitant]
  5. SYNTHROID [Concomitant]
  6. AMLOPINE [Concomitant]
  7. PLAVIX [Concomitant]
  8. TYLENOL (CAPLET) [Concomitant]

REACTIONS (1)
  - PLATELET COUNT DECREASED [None]
